FAERS Safety Report 6210428-5 (Version None)
Quarter: 2009Q2

REPORT INFORMATION
  Report Type: 
  Country: None (occurrence: None)
  Receive Date: 20090601
  Receipt Date: 20090525
  Transmission Date: 20091009
  Serious: Yes (Other)
  Sender: FDA-Public Use
  Company Number: A0768241A

PATIENT
  Sex: Male

DRUGS (5)
  1. KIVEXA [Suspect]
     Indication: HIV INFECTION
     Dates: start: 20061204, end: 20080708
  2. REYATAZ [Suspect]
     Indication: HIV INFECTION
     Dates: start: 20061204, end: 20080708
  3. NORVIR [Suspect]
     Indication: HIV INFECTION
     Dates: start: 20061204
  4. COMBIVIR [Concomitant]
     Indication: HIV INFECTION
     Route: 048
     Dates: start: 20060414, end: 20061204
  5. KALETRA [Concomitant]
     Indication: HIV INFECTION
     Route: 048
     Dates: start: 20060414, end: 20061204

REACTIONS (2)
  - ACUTE MYOCARDIAL INFARCTION [None]
  - VIROLOGIC FAILURE [None]
